FAERS Safety Report 20910949 (Version 1)
Quarter: 2022Q2

REPORT INFORMATION
  Report Type: Spontaneous
  Country: JP (occurrence: JP)
  Receive Date: 20220603
  Receipt Date: 20220603
  Transmission Date: 20220721
  Serious: Yes (Other)
  Sender: FDA-Public Use
  Company Number: JP-MYLANLABS-2022M1041649

PATIENT
  Age: 62 Year
  Sex: Male

DRUGS (10)
  1. ACETAMINOPHEN [Suspect]
     Active Substance: ACETAMINOPHEN
     Indication: Neuralgia
     Dosage: 2400 MILLIGRAM
     Route: 048
  2. LOXOPROFEN SODIUM [Suspect]
     Active Substance: LOXOPROFEN SODIUM
     Indication: Neuralgia
     Dosage: 240 MILLIGRAM
     Route: 048
  3. MORPHINE [Suspect]
     Active Substance: MORPHINE
     Indication: Neuralgia
     Dosage: 160 MILLIGRAM, QD
     Route: 042
  4. MORPHINE [Suspect]
     Active Substance: MORPHINE
     Dosage: 2112 MILLIGRAM, QD
     Route: 042
  5. TAPENTADOL [Suspect]
     Active Substance: TAPENTADOL
     Indication: Neuralgia
     Dosage: 50 MILLIGRAM
     Route: 048
  6. PREGABALIN [Suspect]
     Active Substance: PREGABALIN
     Indication: Neuralgia
     Dosage: 450 MILLIGRAM
     Route: 048
  7. DULOXETINE [Suspect]
     Active Substance: DULOXETINE
     Indication: Neuralgia
     Dosage: 20 MILLIGRAM
     Route: 048
  8. KETAMINE [Suspect]
     Active Substance: KETAMINE
     Indication: Neuralgia
     Dosage: 50 MILLIGRAM, QD
     Route: 042
  9. KETAMINE [Suspect]
     Active Substance: KETAMINE
     Dosage: 156 MILLIGRAM, QD
     Route: 042
  10. DEXAMETHASONE [Concomitant]
     Active Substance: DEXAMETHASONE
     Indication: Neuralgia
     Dosage: 4 MILLIGRAM, QD
     Route: 048

REACTIONS (1)
  - Drug ineffective [Unknown]
